FAERS Safety Report 14142037 (Version 4)
Quarter: 2018Q1

REPORT INFORMATION
  Report Type: Spontaneous
  Country: IT (occurrence: IT)
  Receive Date: 20171030
  Receipt Date: 20180316
  Transmission Date: 20180508
  Serious: Yes (Other)
  Sender: FDA-Public Use
  Company Number: IT-BAYER-2017-203062

PATIENT
  Age: 21 Year
  Sex: Female

DRUGS (1)
  1. KLAIRA [Suspect]
     Active Substance: DIENOGEST\ETHINYL ESTRADIOL
     Indication: ENDOMETRIOSIS
     Dosage: DAILY DOSE 1 DF
     Route: 048
     Dates: start: 20170712, end: 20171012

REACTIONS (15)
  - Vision blurred [None]
  - Paraesthesia [Recovered/Resolved]
  - Blindness unilateral [Recovered/Resolved]
  - Hypoaesthesia oral [Recovered/Resolved]
  - Gait inability [Recovered/Resolved]
  - Coordination abnormal [Recovered/Resolved]
  - Dizziness [Recovered/Resolved]
  - Monoparesis [Recovered/Resolved]
  - Transient ischaemic attack [Recovered/Resolved]
  - Hypoaesthesia [Not Recovered/Not Resolved]
  - Headache [Not Recovered/Not Resolved]
  - Disturbance in attention [Unknown]
  - Off label use [Unknown]
  - Product use in unapproved indication [Unknown]
  - Lip disorder [Recovered/Resolved]

NARRATIVE: CASE EVENT DATE: 201707
